FAERS Safety Report 10011761 (Version 1)
Quarter: 2014Q1

REPORT INFORMATION
  Report Type: Spontaneous
  Country: US (occurrence: None)
  Receive Date: 20140313
  Receipt Date: 20140313
  Transmission Date: 20141002
  Serious: Yes (Life-Threatening, Hospitalization, Disabling)
  Sender: FDA-Public Use
  Company Number: None

PATIENT
  Age: 75 Year
  Sex: Female
  Weight: 43.5 kg

DRUGS (1)
  1. OXALIPLATIN [Suspect]
     Indication: COLON CANCER METASTATIC
     Dosage: 117.3MG  EVERY 2 WEEKS  INTRAVENOUS
     Route: 042
     Dates: start: 20140304

REACTIONS (3)
  - Feeling cold [None]
  - Infusion related reaction [None]
  - Acute interstitial pneumonitis [None]
